FAERS Safety Report 13603369 (Version 1)
Quarter: 2017Q2

REPORT INFORMATION
  Report Type: Spontaneous
  Country: US (occurrence: US)
  Receive Date: 20170601
  Receipt Date: 20170601
  Transmission Date: 20170912
  Serious: No
  Sender: FDA-Public Use
  Company Number: US-OTSUKA-2017_008989

PATIENT
  Age: 60 Year
  Sex: Male

DRUGS (2)
  1. SAMSCA [Suspect]
     Indication: HYPOOSMOLAR STATE
     Dosage: 15 MG, EVERY OTHER DAY
     Route: 048
     Dates: start: 20170223
  2. SAMSCA [Suspect]
     Indication: HYPONATRAEMIA

REACTIONS (2)
  - Off label use [Unknown]
  - Inappropriate schedule of drug administration [Unknown]

NARRATIVE: CASE EVENT DATE: 20170223
